FAERS Safety Report 10425623 (Version 4)
Quarter: 2014Q4

REPORT INFORMATION
  Report Type: Spontaneous
  Country: US (occurrence: US)
  Receive Date: 20140902
  Receipt Date: 20141022
  Transmission Date: 20150528
  Serious: Yes (Death, Hospitalization)
  Sender: FDA-Public Use
  Company Number: US-ACTELION-A-US2014-104374

PATIENT
  Age: 60 Year
  Sex: Male

DRUGS (2)
  1. RIOCIGUAT [Concomitant]
     Active Substance: RIOCIGUAT
  2. OPSUMIT [Suspect]
     Active Substance: MACITENTAN
     Indication: COR PULMONALE CHRONIC
     Dosage: 10 MG, UNK
     Route: 048
     Dates: start: 20140807

REACTIONS (8)
  - Ventricular tachycardia [Unknown]
  - Weight decreased [Unknown]
  - Cachexia [Unknown]
  - Death [Fatal]
  - Gastrointestinal disorder [Unknown]
  - Pneumonia aspiration [Unknown]
  - Dysphagia [Unknown]
  - Hypotension [Unknown]

NARRATIVE: CASE EVENT DATE: 20140818
